FAERS Safety Report 16761965 (Version 1)
Quarter: 2019Q3

REPORT INFORMATION
  Report Type: Spontaneous
  Country: US (occurrence: US)
  Receive Date: 20190830
  Receipt Date: 20190830
  Transmission Date: 20191005
  Serious: No
  Sender: FDA-Public Use
  Company Number: US-JNJFOC-20190826855

PATIENT
  Age: 62 Year
  Sex: Male
  Weight: 52.21 kg

DRUGS (2)
  1. ERDAFITINIB. [Suspect]
     Active Substance: ERDAFITINIB
     Route: 048
     Dates: start: 201906
  2. ERDAFITINIB. [Suspect]
     Active Substance: ERDAFITINIB
     Indication: NEOPLASM MALIGNANT
     Route: 048
     Dates: start: 20190501, end: 201906

REACTIONS (13)
  - Hypoaesthesia [Not Recovered/Not Resolved]
  - Lacrimation disorder [Not Recovered/Not Resolved]
  - Dry mouth [Not Recovered/Not Resolved]
  - Fingerprint loss [Not Recovered/Not Resolved]
  - Dry skin [Not Recovered/Not Resolved]
  - Onycholysis [Not Recovered/Not Resolved]
  - Nail discolouration [Not Recovered/Not Resolved]
  - Lacrimation increased [Not Recovered/Not Resolved]
  - Paraesthesia [Not Recovered/Not Resolved]
  - Oral discomfort [Not Recovered/Not Resolved]
  - Taste disorder [Not Recovered/Not Resolved]
  - Oral pain [Not Recovered/Not Resolved]
  - Hyperaesthesia [Not Recovered/Not Resolved]

NARRATIVE: CASE EVENT DATE: 2019
